FAERS Safety Report 7296126-8 (Version None)
Quarter: 2011Q1

REPORT INFORMATION
  Report Type: 
  Country: None (occurrence: None)
  Receive Date: 20110216
  Receipt Date: 20110203
  Transmission Date: 20110831
  Serious: Yes (Hospitalization)
  Sender: FDA-Public Use
  Company Number: DE-ROCHE-759115

PATIENT
  Sex: Female

DRUGS (5)
  1. FLUOROURACIL [Concomitant]
     Dosage: DOSAGE APPLICATION THROUGH PUMP FOR 48 HOURS ENDED ON 14 JUL 2010.
     Route: 042
     Dates: start: 20100712
  2. BEVACIZUMAB [Suspect]
     Dosage: LAST KNOWN APPLICATION ON 12 JUL 2010.
     Route: 042
  3. FLUOROURACIL [Concomitant]
     Dosage: LAST KNOWN APPLICATION ON 12 JUL 2010.
     Route: 040
  4. CALCIUM FOLINATE [Concomitant]
     Dosage: LAST KNOWN APPLICATION ON 12 JUL 2010.
     Route: 042
  5. IRINOTECAN [Concomitant]
     Dosage: LAST KNOWN APPLICATION ON 12 JUL 2010.
     Route: 042

REACTIONS (10)
  - LUNG INFECTION [None]
  - DYSPHONIA [None]
  - DEEP VEIN THROMBOSIS [None]
  - PYREXIA [None]
  - MUCOUS MEMBRANE DISORDER [None]
  - PULMONARY HYPERTENSION [None]
  - PULMONARY EMBOLISM [None]
  - GASTROINTESTINAL HAEMORRHAGE [None]
  - ORTHOSTATIC INTOLERANCE [None]
  - DYSPEPSIA [None]
